APPROVED DRUG PRODUCT: METHYLPHENIDATE HYDROCHLORIDE
Active Ingredient: METHYLPHENIDATE HYDROCHLORIDE
Strength: 10MG
Dosage Form/Route: TABLET;ORAL
Application: A207884 | Product #002 | TE Code: AB
Applicant: NOVEL LABORATORIES INC
Approved: Nov 13, 2015 | RLD: No | RS: No | Type: RX